FAERS Safety Report 7321830-2 (Version None)
Quarter: 2011Q1

REPORT INFORMATION
  Report Type: 
  Country: None (occurrence: None)
  Receive Date: 20110228
  Receipt Date: 20110215
  Transmission Date: 20110831
  Serious: Yes (Hospitalization)
  Sender: FDA-Public Use
  Company Number: PHHY2011PL14843

PATIENT
  Sex: Female

DRUGS (3)
  1. NSAID'S [Concomitant]
  2. METHOTREXATE [Suspect]
     Indication: RHEUMATOID ARTHRITIS
     Dosage: 20 MG PER WEEK
     Route: 048
     Dates: start: 20060316, end: 20081217
  3. EFFERALGAN CODEINE [Concomitant]

REACTIONS (3)
  - OESOPHAGITIS [None]
  - HYPERTENSION [None]
  - ANAEMIA [None]
